FAERS Safety Report 4851081-2 (Version None)
Quarter: 2005Q4

REPORT INFORMATION
  Report Type: 
  Country: None (occurrence: None)
  Receive Date: 20051130
  Receipt Date: 20050920
  Transmission Date: 20060501
  Serious: No
  Sender: FDA-Public Use
  Company Number: FABR-11245

PATIENT
  Age: 61 Year
  Sex: Female

DRUGS (2)
  1. FABRAZYME [Suspect]
     Indication: FABRY'S DISEASE
     Dosage: 70 MG Q2WKS IV
     Route: 042
     Dates: start: 20031002
  2. ACETAMINOPHEN [Concomitant]

REACTIONS (9)
  - ANXIETY [None]
  - ARTHRALGIA [None]
  - CHILLS [None]
  - HEADACHE [None]
  - HYPERTENSION [None]
  - MALAISE [None]
  - MYALGIA [None]
  - NON-CARDIAC CHEST PAIN [None]
  - PALPITATIONS [None]
